FAERS Safety Report 11985004 (Version 2)
Quarter: 2016Q4

REPORT INFORMATION
  Report Type: Report from Study
  Country: CO (occurrence: CO)
  Receive Date: 20160201
  Receipt Date: 20161024
  Transmission Date: 20170206
  Serious: Yes (Other)
  Sender: FDA-Public Use
  Company Number: CO-REGENERON PHARMACEUTICALS, INC.-2016-10997

PATIENT

DRUGS (1)
  1. EYLEA [Suspect]
     Active Substance: AFLIBERCEPT
     Indication: RETINAL VEIN OCCLUSION
     Dosage: 1 DF, Q1MON (RECEIVED A TOTAL OF 3 INJECTIONS)
     Dates: start: 20150805, end: 20151205

REACTIONS (1)
  - Diabetic retinopathy [Unknown]
